FAERS Safety Report 7972871-3 (Version None)
Quarter: 2011Q4

REPORT INFORMATION
  Report Type: 
  Country: None (occurrence: None)
  Receive Date: 20111213
  Receipt Date: 20110607
  Transmission Date: 20120403
  Serious: Yes (Death)
  Sender: FDA-Public Use
  Company Number: ID-BAYER-2011-046931

PATIENT
  Sex: Male

DRUGS (1)
  1. NEXAVAR [Suspect]

REACTIONS (1)
  - DEATH [None]
